FAERS Safety Report 4642306-7 (Version None)
Quarter: 2005Q2

REPORT INFORMATION
  Report Type: 
  Country: None (occurrence: None)
  Receive Date: 20050420
  Receipt Date: 20050407
  Transmission Date: 20051028
  Serious: Yes (Life-Threatening)
  Sender: FDA-Public Use
  Company Number: 2005056488

PATIENT
  Age: 14 Year
  Sex: Male

DRUGS (14)
  1. ADRIAMYCIN PFS [Suspect]
     Indication: HODGKIN'S DISEASE
     Dosage: 25 MG/M2, INTRAVENOUS
     Route: 042
     Dates: start: 20020110
  2. BLEOMYCIN HYDROCHLORIDE (BLEOMYCIN) [Suspect]
     Indication: HODGKIN'S DISEASE
     Dosage: 6 MG/M2, INTRAVENOUS
     Route: 042
     Dates: start: 20020110, end: 20020613
  3. VINBLASTINE SULFATE [Suspect]
     Indication: HODGKIN'S DISEASE
     Dates: start: 20020110, end: 20020613
  4. DACARBAZINE [Suspect]
     Indication: HODGKIN'S DISEASE
     Dosage: (375 MG/M*2), INTRAVENOUS;  (675 MG/M*2), INTRAVENOUS
     Route: 042
     Dates: start: 20020110, end: 20020530
  5. DACARBAZINE [Suspect]
     Indication: HODGKIN'S DISEASE
     Dosage: (375 MG/M*2), INTRAVENOUS;  (675 MG/M*2), INTRAVENOUS
     Route: 042
     Dates: start: 20020613, end: 20020613
  6. VINCRISTINE SULFATE [Concomitant]
  7. PROCARBAZINE HYDROCHLORIDE (PROCARBAZINE HYDROCHLORIDE) [Concomitant]
  8. PREDNISONE [Concomitant]
  9. GRANISETRON (GRANISETRON) [Concomitant]
  10. AZASETRON HYDROCHLORIDE (AZASETRON HYDROCHLORIDE) [Concomitant]
  11. PREDNISONE [Concomitant]
  12. VALSARTAN [Concomitant]
  13. TEMOCAPRIL HYDROCHLORIDE (TEMOCAPRIL HYDROCHLORIDE) [Concomitant]
  14. NIFEDIPINE [Concomitant]

REACTIONS (2)
  - EWING'S SARCOMA [None]
  - RENAL DISORDER [None]
